FAERS Safety Report 8160934 (Version 2)
Quarter: 2015Q3

REPORT INFORMATION
  Report Type: Spontaneous
  Country: US (occurrence: US)
  Receive Date: 20110928
  Receipt Date: 20150805
  Transmission Date: 20151125
  Serious: Yes (Hospitalization, Other)
  Sender: FDA-Public Use
  Company Number: US-BAYER-2011-088080

PATIENT
  Age: 19 Year
  Sex: Female
  Weight: 54.42 kg

DRUGS (1)
  1. MIRENA [Suspect]
     Active Substance: LEVONORGESTREL
     Indication: CONTRACEPTION
     Dosage: UNK
     Route: 015
     Dates: start: 20100622, end: 20130422

REACTIONS (12)
  - Drug ineffective [None]
  - Abdominal pain [None]
  - Uterine perforation [None]
  - Device dislocation [None]
  - Device issue [None]
  - Amenorrhoea [None]
  - Vaginal haemorrhage [None]
  - Pregnancy with contraceptive device [None]
  - Anxiety [None]
  - Emotional disorder [None]
  - Abortion spontaneous [None]
  - Depression [None]

NARRATIVE: CASE EVENT DATE: 201009
